FAERS Safety Report 8425241-8 (Version None)
Quarter: 2012Q2

REPORT INFORMATION
  Report Type: 
  Country: None (occurrence: None)
  Receive Date: 20120605
  Receipt Date: 20120525
  Transmission Date: 20120825
  Serious: Yes (Congenital Anomaly, Other)
  Sender: FDA-Public Use
  Company Number: GER/UKI/12/0024473

PATIENT
  Sex: Male
  Weight: 3.3 kg

DRUGS (2)
  1. PROCHLORPERAZINE MALEATE [Concomitant]
  2. LAMOTRIGINE [Suspect]
     Indication: PRODUCT USED FOR UNKNOWN INDICATION
     Dosage: 100 MG, 1 IN 1 D, TRANSPLACENTAL
     Route: 064

REACTIONS (7)
  - MATERNAL DRUGS AFFECTING FOETUS [None]
  - HYPOSPADIAS [None]
  - LIMB REDUCTION DEFECT [None]
  - HAND DEFORMITY [None]
  - JOINT DISLOCATION [None]
  - WRIST DEFORMITY [None]
  - MULTIPLE CONGENITAL ABNORMALITIES [None]
